FAERS Safety Report 7841253-7 (Version None)
Quarter: 2011Q4

REPORT INFORMATION
  Report Type: 
  Country: None (occurrence: None)
  Receive Date: 20111020
  Receipt Date: 20111011
  Transmission Date: 20120403
  Serious: Yes (Other)
  Sender: FDA-Public Use
  Company Number: AUR-APL-2011-04946

PATIENT
  Age: 44 Year
  Sex: Male

DRUGS (2)
  1. TRIMETHOPRIM + SULFAMETHOXAZOLE [Suspect]
     Indication: SKIN INFECTION
     Dosage: (2 IN 1 D)
  2. HYDROCHLOROTHIAZIDE [Concomitant]

REACTIONS (6)
  - NEUTROPHIL COUNT INCREASED [None]
  - TENDERNESS [None]
  - PAROTID GLAND ENLARGEMENT [None]
  - SWELLING FACE [None]
  - ERYTHEMA [None]
  - LOCAL SWELLING [None]
